FAERS Safety Report 8524745-7 (Version None)
Quarter: 2012Q3

REPORT INFORMATION
  Report Type: 
  Country: None (occurrence: None)
  Receive Date: 20120710
  Receipt Date: 20120629
  Transmission Date: 20120928
  Serious: Yes (Other)
  Sender: FDA-Public Use
  Company Number: 2012MA008190

PATIENT
  Sex: Male

DRUGS (1)
  1. SERTRALINE HYDROCHLORIDE [Suspect]
     Indication: DEPRESSION
     Dosage: 150 MG, QD, TRPL
     Route: 064

REACTIONS (7)
  - HYPERTROPHY [None]
  - MATERNAL DRUGS AFFECTING FOETUS [None]
  - LARGE FOR DATES BABY [None]
  - AGITATION NEONATAL [None]
  - DRUG WITHDRAWAL SYNDROME NEONATAL [None]
  - OPISTHOTONUS [None]
  - TREMOR NEONATAL [None]
